FAERS Safety Report 18784358 (Version 2)
Quarter: 2021Q1

REPORT INFORMATION
  Report Type: Spontaneous
  Country: TN (occurrence: TN)
  Receive Date: 20210125
  Receipt Date: 20210309
  Transmission Date: 20210419
  Serious: Yes (Death, Hospitalization, Other)
  Sender: FDA-Public Use
  Company Number: TN-SA-2021SA003699

PATIENT
  Age: 1 Year
  Sex: Female
  Weight: 7.8 kg

DRUGS (2)
  1. MYOZYME [Suspect]
     Active Substance: ALGLUCOSIDASE ALFA
     Indication: GLYCOGEN STORAGE DISEASE TYPE II
     Dosage: 20 MG/KG, Q15D
     Route: 041
     Dates: start: 20200925, end: 20201217
  2. METHOTREXATE. [Suspect]
     Active Substance: METHOTREXATE
     Dosage: UNK
     Dates: start: 202010, end: 202010

REACTIONS (8)
  - Drug hypersensitivity [Unknown]
  - Pneumonitis [Fatal]
  - Hypoxia [Fatal]
  - Dyspnoea [Fatal]
  - Ejection fraction decreased [Unknown]
  - Cardiac failure [Fatal]
  - Cardiac dysfunction [Unknown]
  - Wrong technique in product usage process [Unknown]

NARRATIVE: CASE EVENT DATE: 2020
